FAERS Safety Report 25157819 (Version 1)
Quarter: 2025Q2

REPORT INFORMATION
  Report Type: Report from Study
  Country: CA (occurrence: CA)
  Receive Date: 20250403
  Receipt Date: 20250403
  Transmission Date: 20250716
  Serious: Yes (Other)
  Sender: JOHNSON AND JOHNSON
  Company Number: CA-JNJFOC-20250387462

PATIENT
  Age: 3 Decade
  Sex: Female

DRUGS (1)
  1. SIMPONI [Suspect]
     Active Substance: GOLIMUMAB
     Indication: Ankylosing spondylitis
     Route: 058
     Dates: start: 20241105

REACTIONS (5)
  - Ankylosing spondylitis [Not Recovered/Not Resolved]
  - Decreased immune responsiveness [Unknown]
  - Sinusitis [Unknown]
  - Influenza like illness [Unknown]
  - Drug ineffective [Unknown]
